FAERS Safety Report 9516088 (Version 1)
Quarter: 2013Q3

REPORT INFORMATION
  Report Type: Spontaneous
  Country: US (occurrence: US)
  Receive Date: 20130911
  Receipt Date: 20130911
  Transmission Date: 20140515
  Serious: Yes (Other)
  Sender: FDA-Public Use
  Company Number: US-GE HEALTHCARE MEDICAL DIAGNOSTICS-OMPQ-PR-1309S-1102

PATIENT
  Age: 43 Year
  Sex: Female

DRUGS (5)
  1. OMNIPAQUE [Suspect]
     Indication: FATIGUE
     Route: 042
     Dates: start: 20130906, end: 20130906
  2. OMNIPAQUE [Suspect]
     Indication: DYSPNOEA
  3. OMNIPAQUE [Suspect]
     Indication: WEIGHT DECREASED
  4. OMNIPAQUE [Suspect]
     Indication: MENSTRUAL DISORDER
  5. OMNIPAQUE [Suspect]
     Indication: DIAGNOSTIC PROCEDURE

REACTIONS (3)
  - Eye swelling [Recovering/Resolving]
  - Throat irritation [Recovering/Resolving]
  - Pruritus [Recovering/Resolving]
